FAERS Safety Report 14980459 (Version 1)
Quarter: 2018Q2

REPORT INFORMATION
  Report Type: Report from Study
  Country: US (occurrence: US)
  Receive Date: 20180606
  Receipt Date: 20180606
  Transmission Date: 20180711
  Serious: Yes (Hospitalization)
  Sender: FDA-Public Use
  Company Number: US-ACTELION-A-NJ2018-173222

PATIENT
  Age: 88 Year
  Sex: Female

DRUGS (17)
  1. TRACLEER [Suspect]
     Active Substance: BOSENTAN
     Indication: PULMONARY ARTERIAL HYPERTENSION
     Dosage: 125 MG, UNK
     Route: 048
     Dates: start: 20121214
  2. DIGOXIN. [Concomitant]
     Active Substance: DIGOXIN
  3. FLUTICASONE. [Concomitant]
     Active Substance: FLUTICASONE
  4. CLINDAMYCIN HCL [Concomitant]
     Active Substance: CLINDAMYCIN HYDROCHLORIDE
  5. SPIRONOLACTONE. [Concomitant]
     Active Substance: SPIRONOLACTONE
  6. NYSTATIN. [Concomitant]
     Active Substance: NYSTATIN
  7. METOLAZONE. [Concomitant]
     Active Substance: METOLAZONE
  8. FOLIC ACID. [Concomitant]
     Active Substance: FOLIC ACID
  9. PROPIONATE [Concomitant]
  10. MECLIZINE HCL [Concomitant]
     Active Substance: MECLIZINE HYDROCHLORIDE
  11. HYDROCORTONE [Concomitant]
     Active Substance: HYDROCORTISONE
  12. TRAMADOL HCL [Concomitant]
     Active Substance: TRAMADOL HYDROCHLORIDE
  13. LIOTHYRONINE SODIUM. [Concomitant]
     Active Substance: LIOTHYRONINE SODIUM
  14. ALLOPURINOL. [Concomitant]
     Active Substance: ALLOPURINOL
  15. COLCRYS [Concomitant]
     Active Substance: COLCHICINE
  16. PREDNISONE. [Concomitant]
     Active Substance: PREDNISONE
  17. HYDROCODONE/ACETAMINOPHEN [Concomitant]
     Active Substance: ACETAMINOPHEN\HYDROCODONE

REACTIONS (3)
  - Fall [Recovered/Resolved]
  - Transfusion [Unknown]
  - Haematoma [Recovered/Resolved]

NARRATIVE: CASE EVENT DATE: 20180401
